FAERS Safety Report 12713384 (Version 2)
Quarter: 2017Q3

REPORT INFORMATION
  Report Type: Report from Study
  Country: AU (occurrence: AU)
  Receive Date: 20160903
  Receipt Date: 20170717
  Transmission Date: 20171127
  Serious: Yes (Hospitalization)
  Sender: FDA-Public Use
  Company Number: AU-ASTRAZENECA-2016SE91665

PATIENT
  Age: 21659 Day
  Sex: Female

DRUGS (9)
  1. FEXOFENADINE [Concomitant]
     Active Substance: FEXOFENADINE\FEXOFENADINE HYDROCHLORIDE
     Indication: RASH
     Route: 048
     Dates: start: 20160812
  2. ADVANTAN/DIPROSONE [Concomitant]
     Indication: DERMATOMYOSITIS
  3. PREDNISONE. [Concomitant]
     Active Substance: PREDNISONE
     Indication: DERMATOMYOSITIS
     Route: 048
     Dates: start: 20150904
  4. ARIMIDEX [Suspect]
     Active Substance: ANASTROZOLE
     Indication: BREAST CANCER FEMALE
     Route: 048
     Dates: start: 20160811, end: 20160812
  5. RADIOTHERAPY [Suspect]
     Active Substance: RADIATION THERAPY
     Indication: BREAST CANCER
     Dosage: 50 GY IN 25  FRACTIONS
     Route: 065
     Dates: start: 20160704, end: 20160810
  6. CLEXANE [Concomitant]
     Active Substance: ENOXAPARIN SODIUM
     Indication: PULMONARY EMBOLISM
     Route: 030
     Dates: start: 201511
  7. FLUCLOXACILLIN [Suspect]
     Active Substance: FLUCLOXACILLIN
     Indication: SINUSITIS
     Route: 048
     Dates: start: 201608
  8. STUDY PROCEDURE [Suspect]
     Active Substance: INVESTIGATIONAL PRODUCT
     Indication: BREAST CANCER FEMALE
     Route: 065
  9. CALCIUM VIT D.MAGNESIUM [Concomitant]
     Indication: OSTEOPOROSIS
     Dosage: 720MG/2400IU/ 375 MG
     Dates: start: 201601

REACTIONS (6)
  - Dermatitis [None]
  - Rash [Not Recovered/Not Resolved]
  - Pyrexia [Recovered/Resolved]
  - Hypotension [Recovered/Resolved]
  - Rash erythematous [None]
  - Dizziness [None]

NARRATIVE: CASE EVENT DATE: 20160811
